FAERS Safety Report 6812168-8 (Version None)
Quarter: 2010Q2

REPORT INFORMATION
  Report Type: 
  Country: None (occurrence: None)
  Receive Date: 20100628
  Receipt Date: 20100615
  Transmission Date: 20101027
  Serious: Yes (Hospitalization)
  Sender: FDA-Public Use
  Company Number: 7008200

PATIENT
  Age: 27 Year
  Sex: Female

DRUGS (2)
  1. REBIF [Suspect]
     Indication: RELAPSING-REMITTING MULTIPLE SCLEROSIS
     Dosage: 22 MCG, 3 IN 1 WK, SUBCUTANEOUS
     Route: 058
     Dates: start: 20100201, end: 20100401
  2. TOLTERODINE TARTRATE [Concomitant]

REACTIONS (4)
  - ASPIRATION [None]
  - LUNG INFILTRATION [None]
  - RESPIRATORY ARREST [None]
  - STATUS EPILEPTICUS [None]
